FAERS Safety Report 6451985-3 (Version None)
Quarter: 2009Q4

REPORT INFORMATION
  Report Type: 
  Country: None (occurrence: None)
  Receive Date: 20091123
  Receipt Date: 20091022
  Transmission Date: 20100525
  Serious: No
  Sender: FDA-Public Use
  Company Number: US-BAYER-200916011BCC

PATIENT
  Age: 79 Year
  Sex: Female
  Weight: 50 kg

DRUGS (5)
  1. ALEVE (CAPLET) [Suspect]
     Indication: SPONDYLITIS
     Dosage: TOTAL DAILY DOSE: 440 MG  UNIT DOSE: 220 MG
     Route: 048
     Dates: start: 20091019
  2. DILTIAZEM [Concomitant]
     Route: 065
  3. HTC [Concomitant]
     Route: 065
  4. POTASSIUM KLOR-CON [Concomitant]
     Route: 065
  5. ACTONEL [Concomitant]
     Route: 065

REACTIONS (1)
  - CONSTIPATION [None]
